FAERS Safety Report 15826556 (Version 2)
Quarter: 2019Q1

REPORT INFORMATION
  Report Type: Spontaneous
  Country: JP (occurrence: JP)
  Receive Date: 20190115
  Receipt Date: 20190318
  Transmission Date: 20190417
  Serious: Yes (Life-Threatening, Hospitalization)
  Sender: FDA-Public Use
  Company Number: JP-CELGENEUS-JPN-20190103847

PATIENT
  Age: 74 Year

DRUGS (2)
  1. ABRAXANE [Suspect]
     Active Substance: PACLITAXEL
     Indication: PANCREATIC CARCINOMA
     Route: 041
     Dates: start: 20181228, end: 20190104
  2. GEMCITABINE HYDROCHLORIDE. [Concomitant]
     Active Substance: GEMCITABINE HYDROCHLORIDE
     Indication: PANCREATIC CARCINOMA
     Route: 041
     Dates: start: 20181228, end: 20190104

REACTIONS (1)
  - Enterocolitis haemorrhagic [Recovering/Resolving]

NARRATIVE: CASE EVENT DATE: 20190109
